FAERS Safety Report 13383102 (Version 3)
Quarter: 2017Q2

REPORT INFORMATION
  Report Type: Spontaneous
  Country: DE (occurrence: DE)
  Receive Date: 20170329
  Receipt Date: 20170426
  Transmission Date: 20170830
  Serious: Yes (Hospitalization, Other)
  Sender: FDA-Public Use
  Company Number: DE-GLENMARK PHARMACEUTICALS-2017GMK026278

PATIENT

DRUGS (8)
  1. PANTOPRAZOL [Concomitant]
     Active Substance: PANTOPRAZOLE SODIUM
     Indication: GASTROOESOPHAGEAL REFLUX DISEASE
     Dosage: UNK
     Route: 048
  2. SIMVASTATIN. [Concomitant]
     Active Substance: SIMVASTATIN
     Dosage: 40 MG, OD (0-0-1)
  3. METFORMIN [Concomitant]
     Active Substance: METFORMIN HYDROCHLORIDE
     Indication: TYPE 2 DIABETES MELLITUS
     Dosage: UNK
     Route: 048
     Dates: start: 201502, end: 201703
  4. SIMVASTATIN. [Concomitant]
     Active Substance: SIMVASTATIN
     Indication: HYPERCHOLESTEROLAEMIA
     Dosage: UNK
     Route: 048
  5. LEVEMIR [Concomitant]
     Active Substance: INSULIN DETEMIR
     Indication: TYPE 2 DIABETES MELLITUS
     Dosage: UNK, ONCE IN EVENING
     Route: 058
  6. ATOVAQUONE/PROGUANIL HYDROCHLORIDE [Suspect]
     Active Substance: ATOVAQUONE\PROGUANIL HYDROCHLORIDE
     Indication: MALARIA PROPHYLAXIS
     Dosage: UNK, 250/100MG, 1 TABLET AFTER LUNCH
     Route: 048
     Dates: start: 20170205, end: 20170228
  7. JANUVIA [Concomitant]
     Active Substance: SITAGLIPTIN PHOSPHATE
     Indication: TYPE 2 DIABETES MELLITUS
     Dosage: UNK, OD
     Route: 065
     Dates: start: 201703
  8. JANUVIA [Concomitant]
     Active Substance: SITAGLIPTIN PHOSPHATE
     Dosage: 100 MG, OD (DOSE AT DISCHARGE)

REACTIONS (23)
  - Hepatic steatosis [Recovering/Resolving]
  - C-reactive protein increased [Recovering/Resolving]
  - Syncope [Recovering/Resolving]
  - Lung abscess [Recovering/Resolving]
  - Decreased appetite [Recovering/Resolving]
  - Cough [Recovering/Resolving]
  - Muscular weakness [Recovering/Resolving]
  - Weight decreased [Recovering/Resolving]
  - Malaise [Recovering/Resolving]
  - Night sweats [Recovering/Resolving]
  - Haemoptysis [Recovering/Resolving]
  - Fall [Recovering/Resolving]
  - Pyrexia [Recovering/Resolving]
  - Pneumonia [Recovering/Resolving]
  - Vertigo [Recovering/Resolving]
  - Altered state of consciousness [Recovering/Resolving]
  - Asthenia [Recovering/Resolving]
  - Diarrhoea [Recovering/Resolving]
  - Condition aggravated [Recovering/Resolving]
  - Feeling abnormal [Recovering/Resolving]
  - Hilar lymphadenopathy [Recovering/Resolving]
  - White blood cell count increased [Recovering/Resolving]
  - Hyperhidrosis [Recovering/Resolving]

NARRATIVE: CASE EVENT DATE: 20170206
